FAERS Safety Report 9257938 (Version 1)
Quarter: 2013Q1

REPORT INFORMATION
  Report Type: Spontaneous
  Country: US (occurrence: None)
  Receive Date: 20121212
  Receipt Date: 20121212
  Transmission Date: 20140127
  Serious: No
  Sender: FDA-Public Use
  Company Number: 1208USA010706

PATIENT
  Sex: Female

DRUGS (2)
  1. VICTRELIS [Suspect]
     Indication: HEPATITIS C
     Route: 048
  2. UNSPECIFIED INGREDIENT [Suspect]
     Indication: HEPATITIS C

REACTIONS (3)
  - Platelet count decreased [None]
  - White blood cell count decreased [None]
  - Haematocrit decreased [None]
